FAERS Safety Report 9451421 (Version 1)
Quarter: 2013Q3

REPORT INFORMATION
  Report Type: Spontaneous
  Country: CN (occurrence: CN)
  Receive Date: 20130809
  Receipt Date: 20130809
  Transmission Date: 20140515
  Serious: Yes (Other)
  Sender: FDA-Public Use
  Company Number: PHHY2013CN083678

PATIENT
  Age: 39 Year
  Sex: Male

DRUGS (2)
  1. MYCOPHENOLATE MOFETIL [Suspect]
     Indication: IMMUNOSUPPRESSION
  2. PREDNISONE [Suspect]
     Indication: IMMUNOSUPPRESSION

REACTIONS (6)
  - Rectal adenocarcinoma [Unknown]
  - Haematochezia [Unknown]
  - Haemorrhoids [Unknown]
  - Rectal lesion [Unknown]
  - Metastases to abdominal cavity [Unknown]
  - Metastases to liver [Unknown]
